FAERS Safety Report 14950127 (Version 1)
Quarter: 2018Q2

REPORT INFORMATION
  Report Type: Spontaneous
  Country: US (occurrence: US)
  Receive Date: 20180530
  Receipt Date: 20180530
  Transmission Date: 20180711
  Serious: No
  Sender: FDA-Public Use
  Company Number: US-AMGEN-USASP2018070176

PATIENT
  Sex: Female

DRUGS (3)
  1. ENBREL [Suspect]
     Active Substance: ETANERCEPT
     Indication: ANKYLOSING SPONDYLITIS
     Dosage: 25 MG, 2 TIMES/WK
     Route: 065
     Dates: start: 2000, end: 2017
  2. ENBREL [Suspect]
     Active Substance: ETANERCEPT
     Indication: CROHN^S DISEASE
  3. FORTEO [Suspect]
     Active Substance: TERIPARATIDE
     Indication: OSTEOPOROSIS
     Dosage: UNK
     Route: 065
     Dates: start: 20161026, end: 201702

REACTIONS (12)
  - Osteoporosis [Unknown]
  - White blood cell count increased [Unknown]
  - Mobility decreased [Unknown]
  - Infection [Unknown]
  - Fatigue [Unknown]
  - Skin disorder [Recovered/Resolved]
  - Injection site bruising [Unknown]
  - Psoriasis [Unknown]
  - Pain [Unknown]
  - Asthenia [Unknown]
  - Blood calcium decreased [Recovered/Resolved]
  - Injection site induration [Unknown]

NARRATIVE: CASE EVENT DATE: 2017
